FAERS Safety Report 8620963-8 (Version None)
Quarter: 2012Q3

REPORT INFORMATION
  Report Type: 
  Country: None (occurrence: None)
  Receive Date: 20120824
  Receipt Date: 20120814
  Transmission Date: 20120928
  Serious: Yes (Hospitalization)
  Sender: FDA-Public Use
  Company Number: FR-ELI_LILLY_AND_COMPANY-FR201206003066

PATIENT
  Age: 74 Year
  Sex: Female

DRUGS (3)
  1. CACIT D3 [Concomitant]
     Indication: OSTEOPOROSIS
     Dosage: 400 MG, QD
  2. FORTEO [Suspect]
     Indication: OSTEOPOROTIC FRACTURE
     Dosage: 20 UG, QD
     Dates: start: 20111017
  3. PIASCLEDINE                        /00809501/ [Concomitant]
     Indication: OSTEOARTHRITIS
     Dosage: 300 MG, QD

REACTIONS (1)
  - OSTEOARTHRITIS [None]
